FAERS Safety Report 12654497 (Version 2)
Quarter: 2016Q3

REPORT INFORMATION
  Report Type: Spontaneous
  Country: US (occurrence: US)
  Receive Date: 20160816
  Receipt Date: 20160909
  Transmission Date: 20161109
  Serious: No
  Sender: FDA-Public Use
  Company Number: US-B.I. PHARMACEUTICALS,INC./RIDGEFIELD-2016-BI-52801BP

PATIENT
  Sex: Male

DRUGS (3)
  1. CATAPRES-TTS [Suspect]
     Active Substance: CLONIDINE
     Indication: ANXIETY
     Dosage: DOSE PER APPLICATION: TTS 1; FORMULATION: PATCH
     Route: 065
     Dates: start: 2002, end: 2011
  2. CATAPRES-TTS [Suspect]
     Active Substance: CLONIDINE
     Indication: AUTISM
     Dosage: DOSE PER APPLICATION: TTS 2; FORMULATION: PATCH
     Route: 065
     Dates: start: 2011, end: 2015
  3. CATAPRES-TTS [Suspect]
     Active Substance: CLONIDINE
     Dosage: DOSE PER APPLICATION: TTS 3; FORMULATION: PATCH
     Route: 065
     Dates: start: 2015

REACTIONS (5)
  - Erythema [Recovered/Resolved]
  - Drug administered to patient of inappropriate age [Unknown]
  - Incorrect drug administration duration [Unknown]
  - Off label use [Unknown]
  - Application site pruritus [Recovered/Resolved]

NARRATIVE: CASE EVENT DATE: 2002
